FAERS Safety Report 12811533 (Version 1)
Quarter: 2016Q4

REPORT INFORMATION
  Report Type: Spontaneous
  Country: US (occurrence: US)
  Receive Date: 20161005
  Receipt Date: 20161005
  Transmission Date: 20170207
  Serious: No
  Sender: FDA-Public Use
  Company Number: US-AMGEN-USASP2016098417

PATIENT
  Age: 66 Year
  Sex: Female

DRUGS (1)
  1. PROLIA [Suspect]
     Active Substance: DENOSUMAB
     Indication: PRODUCT USED FOR UNKNOWN INDICATION
     Dosage: UNK
     Route: 065
     Dates: start: 201512

REACTIONS (7)
  - Feeling hot [Unknown]
  - Skin odour abnormal [Unknown]
  - Eczema [Unknown]
  - Burning sensation [Unknown]
  - Pruritus [Recovering/Resolving]
  - Sleep disorder [Unknown]
  - Procedural pain [Unknown]
